FAERS Safety Report 10665980 (Version 1)
Quarter: 2014Q4

REPORT INFORMATION
  Report Type: Spontaneous
  Country: DE (occurrence: DE)
  Receive Date: 20141219
  Receipt Date: 20141219
  Transmission Date: 20150529
  Serious: Yes (Other)
  Sender: FDA-Public Use
  Company Number: DE-ASTRAZENECA-2014SE95462

PATIENT
  Age: 38 Year
  Sex: Female
  Weight: 71 kg

DRUGS (4)
  1. FLUANXOL [Suspect]
     Active Substance: FLUPENTIXOL
     Indication: SCHIZOAFFECTIVE DISORDER
     Route: 048
     Dates: start: 20131014, end: 20140716
  2. L-THYROX [Concomitant]
     Active Substance: LEVOTHYROXINE SODIUM
     Indication: HYPOTHYROIDISM
     Dosage: BETWEEN 25 AND 50 ?G/D
     Route: 048
  3. SEROQUEL [Suspect]
     Active Substance: QUETIAPINE FUMARATE
     Indication: SCHIZOAFFECTIVE DISORDER
     Route: 048
     Dates: start: 20131014, end: 20140714
  4. SEROQUEL [Suspect]
     Active Substance: QUETIAPINE FUMARATE
     Indication: SCHIZOAFFECTIVE DISORDER
     Dosage: QUATIAPINE, 200MG-200MG-300MG PER DAY
     Route: 048
     Dates: start: 20131014, end: 20140716

REACTIONS (2)
  - Exposure during pregnancy [Unknown]
  - Gestational diabetes [Recovered/Resolved]
